FAERS Safety Report 9462458 (Version 1)
Quarter: 2013Q3

REPORT INFORMATION
  Report Type: Spontaneous
  Country: JP (occurrence: JP)
  Receive Date: 20130816
  Receipt Date: 20130816
  Transmission Date: 20140515
  Serious: Yes (Hospitalization, Other)
  Sender: FDA-Public Use
  Company Number: JP-BAXTER-2013BAX028989

PATIENT
  Age: 52 Year
  Sex: Male
  Weight: 53.5 kg

DRUGS (4)
  1. ADVATE 2000 [Suspect]
     Indication: HAEMORRHAGE PROPHYLAXIS
     Route: 042
     Dates: start: 20121127, end: 20130620
  2. ADVATE 2000 [Suspect]
     Route: 042
     Dates: start: 20130621, end: 20130626
  3. ADVATE 2000 [Suspect]
     Route: 042
     Dates: start: 20130627
  4. FERROMIA [Concomitant]
     Indication: ANAEMIA
     Route: 048
     Dates: start: 20130328

REACTIONS (5)
  - Factor VIII inhibition [Not Recovered/Not Resolved]
  - Bleeding time prolonged [Unknown]
  - Anaemia [Recovering/Resolving]
  - Post procedural infection [Recovered/Resolved]
  - Enterococcal infection [Recovered/Resolved]
